FAERS Safety Report 8977572 (Version 1)
Quarter: 2012Q4

REPORT INFORMATION
  Report Type: 
  Country: US (occurrence: US)
  Receive Date: 20121220
  Receipt Date: 20121220
  Transmission Date: 20130627
  Serious: Yes (Other)
  Sender: FDA-Public Use
  Company Number: US-GLAXOSMITHKLINE-A0890356A

PATIENT
  Sex: Female

DRUGS (5)
  1. SORIATANE [Suspect]
     Indication: PSORIASIS
     Route: 048
     Dates: start: 200806, end: 200806
  2. CONTRACEPTIVE [Suspect]
     Indication: CONTRACEPTION
  3. NUVARING [Suspect]
     Indication: CONTRACEPTION
  4. ENBREL [Concomitant]
  5. PROZAC [Concomitant]

REACTIONS (8)
  - Unintended pregnancy [Not Recovered/Not Resolved]
  - Asthenia [Unknown]
  - Fatigue [Unknown]
  - Gait disturbance [Unknown]
  - Malaise [Unknown]
  - Hepatic pain [Unknown]
  - Renal pain [Unknown]
  - Exposure during pregnancy [Unknown]
